FAERS Safety Report 7825900-1 (Version None)
Quarter: 2011Q4

REPORT INFORMATION
  Report Type: 
  Country: None (occurrence: None)
  Receive Date: 20111019
  Receipt Date: 20111004
  Transmission Date: 20120403
  Serious: Yes (Hospitalization, Other)
  Sender: FDA-Public Use
  Company Number: US-ROCHE-692183

PATIENT
  Sex: Male
  Weight: 76 kg

DRUGS (18)
  1. PROTONIX [Concomitant]
     Dates: start: 20080524, end: 20100423
  2. LASIX [Concomitant]
     Dates: start: 20081017, end: 20100225
  3. LEVAQUIN [Concomitant]
     Dates: start: 20100305, end: 20100329
  4. ASPIRIN [Concomitant]
     Dates: start: 20090430, end: 20100423
  5. MUCINEX [Concomitant]
     Dates: start: 20100224, end: 20100423
  6. MYCOPHENOLATE MOFETIL (CELLCEPT) [Suspect]
     Route: 065
     Dates: start: 20080603, end: 20100224
  7. LIPITOR [Concomitant]
     Dates: start: 20080909, end: 20100423
  8. METOPROLOL TARTRATE [Concomitant]
     Dates: start: 20100101, end: 20100423
  9. MYCOPHENOLATE MOFETIL (CELLCEPT) [Suspect]
     Indication: KIDNEY TRANSPLANT REJECTION
     Dosage: TEMPORARILY STOPPED
     Route: 065
     Dates: start: 20080524, end: 20080602
  10. MYCOPHENOLATE MOFETIL (CELLCEPT) [Suspect]
     Route: 065
     Dates: start: 20100305, end: 20100330
  11. PREDNISONE [Suspect]
     Indication: KIDNEY TRANSPLANT REJECTION
     Route: 065
     Dates: start: 20080617, end: 20100406
  12. PLAVIX [Concomitant]
     Dates: start: 20100305, end: 20100423
  13. MYCOPHENOLATE MOFETIL (CELLCEPT) [Suspect]
     Route: 065
     Dates: start: 20100225, end: 20100305
  14. PREDNISONE [Suspect]
     Route: 065
     Dates: start: 20100409, end: 20100423
  15. CP-690550 [Suspect]
     Indication: KIDNEY TRANSPLANT REJECTION
     Route: 048
  16. TAMSULOSIN HYDROCHLORIDE [Concomitant]
     Dates: start: 20080527, end: 20100423
  17. VALSARTAN [Concomitant]
     Dates: start: 20081118, end: 20100225
  18. HUMALOG [Concomitant]
     Dates: start: 20080525, end: 20100423

REACTIONS (7)
  - STAPHYLOCOCCAL SEPSIS [None]
  - PERIPHERAL ISCHAEMIA [None]
  - LOCALISED INFECTION [None]
  - CELLULITIS [None]
  - DIABETIC KETOACIDOSIS [None]
  - CORONARY ARTERY DISEASE [None]
  - STAPHYLOCOCCAL INFECTION [None]
